FAERS Safety Report 9748318 (Version 1)
Quarter: 2013Q4

REPORT INFORMATION
  Report Type: Spontaneous
  Country: NL (occurrence: NL)
  Receive Date: 20131212
  Receipt Date: 20131212
  Transmission Date: 20140711
  Serious: Yes (Other)
  Sender: FDA-Public Use
  Company Number: PHHY2013NL143411

PATIENT
  Age: 35 Year
  Sex: Female

DRUGS (2)
  1. CICLOSPORIN [Suspect]
  2. ICODEXTRIN [Suspect]

REACTIONS (9)
  - Sclerosing encapsulating peritonitis [Recovering/Resolving]
  - Abdominal discomfort [Recovered/Resolved]
  - Abdominal distension [Recovered/Resolved]
  - Decreased appetite [Recovered/Resolved]
  - Vomiting [Recovering/Resolving]
  - Ileus [Recovering/Resolving]
  - Intestinal calcification [Recovering/Resolving]
  - Peritoneal fibrosis [Recovering/Resolving]
  - Renal transplant failure [Unknown]
